FAERS Safety Report 14997933 (Version 1)
Quarter: 2018Q2

REPORT INFORMATION
  Report Type: Spontaneous
  Country: US (occurrence: US)
  Receive Date: 20180611
  Receipt Date: 20180611
  Transmission Date: 20180711
  Serious: No
  Sender: FDA-Public Use
  Company Number: US-FOUNDATIONCONSUMERHC-2018-US-007644

PATIENT
  Age: 27 Year
  Sex: Female
  Weight: 48.53 kg

DRUGS (6)
  1. UNSPECIFIED ^VITAMINS^ [Concomitant]
  2. UNSPECIFIED PREBIOTICS [Concomitant]
  3. UNSPECIFIED PROBIOTICS [Concomitant]
  4. UNSPECIFIED ZINC PRODUCT [Concomitant]
  5. PLAN B ONE-STEP [Suspect]
     Active Substance: LEVONORGESTREL
     Indication: POST COITAL CONTRACEPTION
     Dosage: 1.5 MG
     Route: 048
     Dates: start: 20180421, end: 20180421
  6. DOXYCYCLINE. [Concomitant]
     Active Substance: DOXYCYCLINE
     Dates: end: 20180504

REACTIONS (3)
  - Vaginal haemorrhage [Not Recovered/Not Resolved]
  - Dysmenorrhoea [Not Recovered/Not Resolved]
  - Acne [Not Recovered/Not Resolved]

NARRATIVE: CASE EVENT DATE: 201804
